FAERS Safety Report 5651556-2 (Version None)
Quarter: 2008Q1

REPORT INFORMATION
  Report Type: 
  Country: None (occurrence: None)
  Receive Date: 20080305
  Receipt Date: 20080223
  Transmission Date: 20080703
  Serious: Yes (Hospitalization)
  Sender: FDA-Public Use
  Company Number: EC-WYE-H02874608

PATIENT
  Age: 43 Year
  Sex: Male

DRUGS (4)
  1. ZURCAL [Suspect]
     Route: 048
  2. COMTREX [Suspect]
     Indication: NASOPHARYNGITIS
     Dosage: DF
     Route: 048
     Dates: start: 20080119, end: 20080201
  3. ACETAMINOPHEN [Suspect]
     Indication: NASOPHARYNGITIS
     Dosage: DF
     Route: 048
     Dates: start: 20080119, end: 20080201
  4. CATAFLAM [Suspect]
     Indication: ARTHRALGIA
     Route: 048
     Dates: start: 20080119, end: 20080201

REACTIONS (5)
  - ABDOMINAL PAIN UPPER [None]
  - ASTHENIA [None]
  - GASTRIC HAEMORRHAGE [None]
  - HELICOBACTER GASTRITIS [None]
  - MELAENA [None]
